FAERS Safety Report 5195376-4 (Version None)
Quarter: 2006Q4

REPORT INFORMATION
  Report Type: 
  Country: None (occurrence: None)
  Receive Date: 20061229
  Receipt Date: 20061220
  Transmission Date: 20070319
  Serious: Yes (Other)
  Sender: FDA-Public Use
  Company Number: BR-PFIZER INC-2006155377

PATIENT
  Sex: Male

DRUGS (2)
  1. FRONTAL [Suspect]
     Indication: ANXIETY
     Route: 048
  2. FRONTAL [Suspect]
     Indication: PANIC DISORDER

REACTIONS (3)
  - DRUG DEPENDENCE [None]
  - INSOMNIA [None]
  - TREMOR [None]
